FAERS Safety Report 5838140-2 (Version None)
Quarter: 2008Q3

REPORT INFORMATION
  Report Type: 
  Country: None (occurrence: None)
  Receive Date: 20080808
  Receipt Date: 20080729
  Transmission Date: 20090109
  Serious: Yes (Other)
  Sender: FDA-Public Use
  Company Number: GR-JNJFOC-20080601524

PATIENT
  Age: 53 Year
  Sex: Female

DRUGS (4)
  1. REMICADE [Suspect]
     Route: 042
  2. REMICADE [Suspect]
     Indication: PSORIATIC ARTHROPATHY
     Route: 042
  3. SANDIMMUNE [Concomitant]
     Route: 048
  4. THYROHORMONE [Concomitant]
     Route: 048

REACTIONS (3)
  - BURNING SENSATION [None]
  - DIZZINESS [None]
  - DYSPNOEA [None]
